FAERS Safety Report 9717782 (Version 1)
Quarter: 2013Q4

REPORT INFORMATION
  Report Type: Spontaneous
  Country: US (occurrence: US)
  Receive Date: 20131125
  Receipt Date: 20131125
  Transmission Date: 20140711
  Serious: No
  Sender: FDA-Public Use
  Company Number: US-VIVUS-2012V1000227

PATIENT
  Age: 46 Year
  Sex: Female
  Weight: 90.35 kg

DRUGS (7)
  1. QSYMIA [Suspect]
     Indication: WEIGHT DECREASED
     Dosage: 1 CAPSULE
     Route: 048
     Dates: start: 20121013
  2. TRIOSINT [Concomitant]
     Indication: THYROID DISORDER
     Route: 048
  3. PROVELLA [Concomitant]
     Indication: MALABSORPTION
     Route: 048
  4. VITAMIN B-12 [Concomitant]
     Indication: VITAMIN SUPPLEMENTATION
  5. KLONOPIN [Concomitant]
     Indication: SLEEP DISORDER
     Route: 048
  6. IRON [Concomitant]
     Indication: BLOOD IRON DECREASED
     Route: 048
  7. EMPRESS [Concomitant]
     Indication: CONTRACEPTION

REACTIONS (1)
  - Incorrect dose administered [Recovered/Resolved]
